FAERS Safety Report 21461422 (Version 1)
Quarter: 2022Q4

REPORT INFORMATION
  Report Type: Report from Study
  Country: US (occurrence: US)
  Receive Date: 20221015
  Receipt Date: 20221015
  Transmission Date: 20230113
  Serious: No
  Sender: FDA-Public Use
  Company Number: US-ABBVIE-21K-163-4111273-00

PATIENT
  Age: 28 Year
  Sex: Male

DRUGS (4)
  1. HUMIRA [Suspect]
     Active Substance: ADALIMUMAB
     Indication: Hidradenitis
     Dosage: DAY 1
     Route: 058
     Dates: start: 20210903, end: 20210903
  2. HUMIRA [Suspect]
     Active Substance: ADALIMUMAB
     Dosage: DAY 15
     Route: 058
     Dates: start: 20210917, end: 20210917
  3. HUMIRA [Suspect]
     Active Substance: ADALIMUMAB
     Dosage: FROM DAY 29
     Route: 058
     Dates: start: 20211001
  4. HUMIRA [Suspect]
     Active Substance: ADALIMUMAB
     Route: 058

REACTIONS (7)
  - Pruritus [Recovering/Resolving]
  - Pruritus [Recovered/Resolved]
  - Pain [Recovering/Resolving]
  - Pain [Recovered/Resolved]
  - Pain of skin [Recovered/Resolved]
  - Dry skin [Not Recovered/Not Resolved]
  - Nasopharyngitis [Recovered/Resolved]

NARRATIVE: CASE EVENT DATE: 20210901
